FAERS Safety Report 13137441 (Version 3)
Quarter: 2017Q1

REPORT INFORMATION
  Report Type: Report from Study
  Country: IN (occurrence: IN)
  Receive Date: 20170123
  Receipt Date: 20170308
  Transmission Date: 20170428
  Serious: Yes (Other)
  Sender: FDA-Public Use
  Company Number: IN-ROCHE-1883027

PATIENT
  Age: 64 Year
  Sex: Female

DRUGS (3)
  1. XOLAIR [Suspect]
     Active Substance: OMALIZUMAB
     Dosage: FIFTH DOSE
     Route: 058
     Dates: start: 20161121
  2. XOLAIR [Suspect]
     Active Substance: OMALIZUMAB
     Indication: URTICARIA
     Route: 058
     Dates: start: 20160818
  3. XOLAIR [Suspect]
     Active Substance: OMALIZUMAB
     Dosage: 6TH DOSE OF INJ
     Route: 058
     Dates: start: 20161215

REACTIONS (3)
  - Eyelid oedema [Recovered/Resolved]
  - Angioedema [Unknown]
  - Drug ineffective [Unknown]

NARRATIVE: CASE EVENT DATE: 20160818
